FAERS Safety Report 11416776 (Version 12)
Quarter: 2018Q2

REPORT INFORMATION
  Report Type: Spontaneous
  Country: US (occurrence: US)
  Receive Date: 20150825
  Receipt Date: 20180418
  Transmission Date: 20180711
  Serious: Yes (Hospitalization, Other)
  Sender: FDA-Public Use
  Company Number: US-ACTELION PHARMACEUTICALS US, INC.-A-NJ2015-122874

PATIENT
  Age: 78 Year
  Sex: Male
  Weight: 95.24 kg

DRUGS (5)
  1. ADCIRCA [Concomitant]
     Active Substance: TADALAFIL
  2. ADEMPAS [Concomitant]
     Active Substance: RIOCIGUAT
  3. OPSUMIT [Suspect]
     Active Substance: MACITENTAN
     Indication: PULMONARY ARTERIAL HYPERTENSION
     Dosage: 10 MG, QD
     Route: 048
     Dates: start: 20141128
  4. WARFARIN [Concomitant]
     Active Substance: WARFARIN
  5. SILDENAFIL. [Concomitant]
     Active Substance: SILDENAFIL

REACTIONS (26)
  - Dizziness [Unknown]
  - Eye infection intraocular [Unknown]
  - Scab [Unknown]
  - Blood magnesium decreased [Unknown]
  - Heart rate increased [Unknown]
  - Eye complication associated with device [Unknown]
  - Fatigue [Unknown]
  - Blood potassium decreased [Unknown]
  - Atrial fibrillation [Unknown]
  - Lens extraction [Unknown]
  - Macular degeneration [Unknown]
  - Fluid retention [Unknown]
  - Syncope [Unknown]
  - Eye operation [Unknown]
  - Cataract operation [Unknown]
  - Intraocular lens implant [Unknown]
  - Viral infection [Unknown]
  - Chest pain [Unknown]
  - Weight decreased [Unknown]
  - Dyspnoea [Unknown]
  - Malaise [Unknown]
  - Eye inflammation [Unknown]
  - Left ventricular dysfunction [Unknown]
  - Palpitations [Unknown]
  - Pain in extremity [Unknown]
  - Rash [Unknown]

NARRATIVE: CASE EVENT DATE: 201612
